FAERS Safety Report 10374479 (Version 1)
Quarter: 2014Q3

REPORT INFORMATION
  Report Type: Spontaneous
  Country: DE (occurrence: DE)
  Receive Date: 20140811
  Receipt Date: 20140811
  Transmission Date: 20150326
  Serious: Yes (Congenital Anomaly)
  Sender: FDA-Public Use
  Company Number: DE-RANBAXY-2014R1-84085

PATIENT
  Age: 1 Day
  Sex: Male
  Weight: 3.5 kg

DRUGS (5)
  1. BASALINSULIN [Concomitant]
     Indication: GESTATIONAL DIABETES
     Dosage: UNK
     Route: 064
     Dates: start: 20130327, end: 20130627
  2. FEMIBION SCHWANGERSCHAFT 1 [Concomitant]
     Indication: PROPHYLAXIS OF NEURAL TUBE DEFECT
     Dosage: UNK
     Route: 064
     Dates: start: 20121005, end: 20130327
  3. METFORMINE [Suspect]
     Active Substance: METFORMIN HYDROCHLORIDE
     Indication: POLYCYSTIC OVARIES
     Dosage: 1000 MG, BID
     Route: 064
     Dates: start: 20121005, end: 20130627
  4. RENNIE [Concomitant]
     Active Substance: MAGNESIUM CARBONATE
     Indication: DYSPEPSIA
     Dosage: UNK
     Route: 064
     Dates: end: 20130627
  5. VGANTOLETTEN [Concomitant]
     Indication: VITAMIN D DEFICIENCY
     Dosage: 1000 IU, QD
     Route: 064
     Dates: start: 20121005, end: 20130627

REACTIONS (1)
  - Eyelid ptosis congenital [Unknown]

NARRATIVE: CASE EVENT DATE: 20130628
